FAERS Safety Report 19313945 (Version 1)
Quarter: 2021Q2

REPORT INFORMATION
  Report Type: Spontaneous
  Country: CN (occurrence: CN)
  Receive Date: 20210527
  Receipt Date: 20210527
  Transmission Date: 20210717
  Serious: Yes (Hospitalization, Disabling)
  Sender: FDA-Public Use
  Company Number: CN-JNJFOC-20210545055

PATIENT
  Age: 1 Month
  Sex: Male
  Weight: 1.1 kg

DRUGS (2)
  1. MOTRIN INFANTS [Suspect]
     Active Substance: IBUPROFEN
     Route: 045
     Dates: start: 20210502, end: 20210503
  2. MOTRIN INFANTS [Suspect]
     Active Substance: IBUPROFEN
     Indication: PATENT DUCTUS ARTERIOSUS
     Route: 045
     Dates: start: 20210501, end: 20210501

REACTIONS (1)
  - Gastric perforation [Recovering/Resolving]

NARRATIVE: CASE EVENT DATE: 20210504
